FAERS Safety Report 16785573 (Version 1)
Quarter: 2019Q4

REPORT INFORMATION
  Report Type: Spontaneous
  Country: US (occurrence: US)
  Receive Date: 20190907
  Receipt Date: 20190907
  Transmission Date: 20200122
  Serious: Yes (Life-Threatening, Hospitalization, Disabling)
  Sender: FDA-Public Use
  Company Number: None

PATIENT
  Age: 63 Year
  Sex: Female
  Weight: 74.25 kg

DRUGS (7)
  1. ZYPREXA [Concomitant]
     Active Substance: OLANZAPINE
  2. LAMOTRIGINE. [Suspect]
     Active Substance: LAMOTRIGINE
     Indication: BIPOLAR DISORDER
     Route: 048
     Dates: start: 20180526, end: 20181002
  3. CPAP [Concomitant]
     Active Substance: DEVICE
  4. HYDROXYCHLOROQUINE [Concomitant]
     Active Substance: HYDROXYCHLOROQUINE
  5. MULTI-VITAMINS WITH MINERALS [Concomitant]
  6. PROZAC [Concomitant]
     Active Substance: FLUOXETINE HYDROCHLORIDE
  7. GABAPENTINE [Concomitant]
     Active Substance: GABAPENTIN

REACTIONS (9)
  - Systemic inflammatory response syndrome [None]
  - Lupus-like syndrome [None]
  - Hypersomnia [None]
  - Pericarditis infective [None]
  - Pneumonia [None]
  - Disability [None]
  - Pyrexia [None]
  - Pleural effusion [None]
  - Fatigue [None]

NARRATIVE: CASE EVENT DATE: 20180529
